FAERS Safety Report 10135956 (Version 1)
Quarter: 2014Q2

REPORT INFORMATION
  Report Type: Spontaneous
  Country: US (occurrence: US)
  Receive Date: 20140429
  Receipt Date: 20140429
  Transmission Date: 20141212
  Serious: No
  Sender: FDA-Public Use
  Company Number: US-009507513-1404USA007256

PATIENT
  Age: 62 Year
  Sex: Male
  Weight: 88.44 kg

DRUGS (8)
  1. PEGINTRON [Suspect]
     Dosage: 150 MICROGRAM/0.5ML, QW
     Route: 058
  2. REBETOL [Suspect]
     Dosage: UNK
     Route: 048
  3. LOVAZA [Concomitant]
     Dosage: UNK
  4. SOVALDI [Concomitant]
     Dosage: UNK
  5. HYDROCHLOROTHIAZIDE (+) VALSARTAN [Concomitant]
     Dosage: 320-12.5
  6. DEXILANT [Concomitant]
     Dosage: DR
  7. VITAMIN D (UNSPECIFIED) [Concomitant]
     Dosage: 1000 UNIT, UNK
  8. ASPIRIN [Concomitant]
     Dosage: UNK MG, UNK

REACTIONS (1)
  - Blood glucose increased [Unknown]
